FAERS Safety Report 10432261 (Version 3)
Quarter: 2014Q3

REPORT INFORMATION
  Report Type: Spontaneous
  Country: DE (occurrence: DE)
  Receive Date: 20140905
  Receipt Date: 20140919
  Transmission Date: 20150326
  Serious: Yes (Other)
  Sender: FDA-Public Use
  Company Number: DE-ROCHE-1443200

PATIENT
  Age: 65 Year
  Sex: Female
  Weight: 67 kg

DRUGS (2)
  1. ROACTEMRA [Suspect]
     Active Substance: TOCILIZUMAB
     Indication: VASCULITIS
     Route: 042
     Dates: start: 20140523, end: 20140827
  2. PREDNISOLON [Concomitant]
     Active Substance: PREDNISOLONE
     Indication: VASCULITIS
     Dosage: 30-10MG
     Route: 048
     Dates: start: 20140523

REACTIONS (4)
  - Polyarteritis nodosa [Not Recovered/Not Resolved]
  - Perichondritis [Unknown]
  - Erythema nodosum [Unknown]
  - Off label use [Unknown]

NARRATIVE: CASE EVENT DATE: 20140623
